FAERS Safety Report 5827146-5 (Version None)
Quarter: 2008Q3

REPORT INFORMATION
  Report Type: 
  Country: None (occurrence: None)
  Receive Date: 20080724
  Receipt Date: 20080711
  Transmission Date: 20090109
  Serious: Yes (Life-Threatening, Hospitalization, Other)
  Sender: FDA-Public Use
  Company Number: 2008055793

PATIENT
  Age: 57 Year
  Sex: Female
  Weight: 93 kg

DRUGS (8)
  1. FRAGMIN [Suspect]
     Indication: THROMBOSIS PROPHYLAXIS
     Dosage: 5000 I.U. (5000 I.U., QD, SUBCUTANEOUS
     Route: 058
     Dates: start: 20080617, end: 20080620
  2. FRAGMIN [Suspect]
     Indication: THROMBOSIS PROPHYLAXIS
     Dosage: 5000 I.U. (5000 I.U., QD, SUBCUTANEOUS
     Route: 058
     Dates: start: 20080616
  3. HUMULIN R [Concomitant]
  4. HUMULIN N (INSULIN HUMAN INJECTIION, ISOPHANE) [Concomitant]
  5. GABAPENTIN [Concomitant]
  6. OXYCONTIN [Concomitant]
  7. ANCEF [Concomitant]
  8. EZETROL (EZETIMIBE) [Concomitant]

REACTIONS (2)
  - PULMONARY EMBOLISM [None]
  - SINUS TACHYCARDIA [None]
